FAERS Safety Report 7354814-9 (Version None)
Quarter: 2011Q1

REPORT INFORMATION
  Report Type: 
  Country: None (occurrence: None)
  Receive Date: 20110307
  Receipt Date: 20110224
  Transmission Date: 20110831
  Serious: Yes (Hospitalization)
  Sender: FDA-Public Use
  Company Number: 841456

PATIENT
  Age: 52 Year
  Sex: Female

DRUGS (10)
  1. PROPOFOL [Concomitant]
  2. LIDOCAINE HYDROCHLORIDE [Suspect]
     Indication: LOCAL ANAESTHESIA
     Dosage: (30 MG, INTRAVENOUS (NOT OTHERWISE SPECIFIED)) (4 ML SUBCUTANEOUS) (4 MG TOPICAL)
  3. LIDOCAINE HYDROCHLORIDE [Suspect]
     Indication: NERVE BLOCK
     Dosage: (30 MG, INTRAVENOUS (NOT OTHERWISE SPECIFIED)) (4 ML SUBCUTANEOUS) (4 MG TOPICAL)
  4. LIDOCAINE HCL VISCOUS [Suspect]
     Indication: LOCAL ANAESTHESIA
  5. DAPSONE [Suspect]
     Indication: LEPROSY
  6. CETACAINE /00556501/ [Suspect]
     Indication: LOCAL ANAESTHESIA
     Route: 061
  7. ROCURONIUM BROMIDE [Concomitant]
  8. ISOFLURANE [Concomitant]
  9. MIDAZOLAM [Concomitant]
  10. FENTANYL CITRATE [Concomitant]

REACTIONS (8)
  - METHAEMOGLOBINAEMIA [None]
  - PULSE ABSENT [None]
  - RESPIRATORY ARREST [None]
  - LARYNGEAL OEDEMA [None]
  - UPPER AIRWAY OBSTRUCTION [None]
  - DYSPNOEA [None]
  - BRADYCARDIA [None]
  - TONGUE OEDEMA [None]
